FAERS Safety Report 5963806-3 (Version None)
Quarter: 2008Q4

REPORT INFORMATION
  Report Type: 
  Country: None (occurrence: None)
  Receive Date: 20081121
  Receipt Date: 20081121
  Transmission Date: 20090506
  Serious: Yes (Hospitalization)
  Sender: FDA-Public Use
  Company Number: None

PATIENT
  Sex: Male

DRUGS (7)
  1. LEVAQUIN [Suspect]
     Indication: POST PROCEDURAL INFECTION
     Dosage: 500 MG ONCE DAILY PO
     Route: 048
     Dates: start: 20080903, end: 20080909
  2. DYAZIDE [Concomitant]
  3. METOPROLOL TARTRATE [Concomitant]
  4. ISOSORBIDE MONONITRATE [Concomitant]
  5. KLOR-CON [Concomitant]
  6. FUROSEMIDE [Concomitant]
  7. OMEPRAZOLE [Concomitant]

REACTIONS (3)
  - JOINT SWELLING [None]
  - TENDON PAIN [None]
  - TENDON RUPTURE [None]
